FAERS Safety Report 7883986-2 (Version None)
Quarter: 2011Q4

REPORT INFORMATION
  Report Type: 
  Country: None (occurrence: None)
  Receive Date: 20111102
  Receipt Date: 20111026
  Transmission Date: 20120403
  Serious: Yes (Hospitalization, Other)
  Sender: FDA-Public Use
  Company Number: PHHY2011NZ92124

PATIENT
  Sex: Male

DRUGS (2)
  1. RISPERIDONE [Concomitant]
     Indication: SCHIZOPHRENIA
     Dosage: 2 MG, BID
  2. CLOZARIL [Suspect]
     Indication: SCHIZOPHRENIA
     Dosage: 100 MG MANE, 400 MG NOCTE
     Dates: start: 19970611, end: 20110901

REACTIONS (8)
  - MENTAL IMPAIRMENT [None]
  - MALAISE [None]
  - MUSCLE INJURY [None]
  - BLOOD CREATINE PHOSPHOKINASE INCREASED [None]
  - RED CELL DISTRIBUTION WIDTH INCREASED [None]
  - MEAN CELL VOLUME DECREASED [None]
  - MEAN CELL HAEMOGLOBIN DECREASED [None]
  - RED BLOOD CELL COUNT INCREASED [None]
